FAERS Safety Report 16160270 (Version 7)
Quarter: 2021Q1

REPORT INFORMATION
  Report Type: Spontaneous
  Country: US (occurrence: US)
  Receive Date: 20190404
  Receipt Date: 20210218
  Transmission Date: 20210419
  Serious: Yes (Other)
  Sender: FDA-Public Use
  Company Number: US-TAKEDA-2019TUS018290

PATIENT
  Age: 76 Year
  Sex: Male
  Weight: 65.76 kg

DRUGS (25)
  1. REVLIMID [Suspect]
     Active Substance: LENALIDOMIDE
     Dosage: 25 MILLIGRAM, QD
     Route: 048
     Dates: start: 202102
  2. NIFEDIPINE. [Concomitant]
     Active Substance: NIFEDIPINE
     Dosage: 60 MILLIGRAM
     Route: 065
     Dates: start: 20181026
  3. RED YEAST RICE WITH PLANT STEROLS [Concomitant]
     Active Substance: DIETARY SUPPLEMENT
     Dosage: 600 MILLIGRAM
     Route: 065
     Dates: start: 20181026
  4. NINLARO [Suspect]
     Active Substance: IXAZOMIB CITRATE
     Indication: PLASMA CELL MYELOMA
     Dosage: 4 MILLIGRAM
     Route: 048
     Dates: start: 20190220
  5. CLINDAMYCIN. [Suspect]
     Active Substance: CLINDAMYCIN
     Indication: GINGIVITIS
     Dosage: 300 MILLIGRAM
     Route: 065
     Dates: start: 20190508
  6. GLIPIZIDE. [Concomitant]
     Active Substance: GLIPIZIDE
     Dosage: 10 MILLIGRAM
     Route: 065
     Dates: start: 20181026
  7. LOSARTAN. [Concomitant]
     Active Substance: LOSARTAN
     Dosage: 100 MILLIGRAM
     Route: 065
     Dates: start: 20190110
  8. PIOGLITAZONE. [Concomitant]
     Active Substance: PIOGLITAZONE
     Dosage: 45 MILLIGRAM
     Route: 065
  9. JANUVIA [Concomitant]
     Active Substance: SITAGLIPTIN PHOSPHATE
     Dosage: 100 MILLIGRAM
     Route: 065
     Dates: start: 20181026
  10. ASA [Concomitant]
     Active Substance: ASPIRIN
     Route: 065
  11. GLUCOSAMINE + CHONDROITIN          /01430901/ [Concomitant]
     Active Substance: CHONDROITIN SULFATE (BOVINE)\GLUCOSAMINE SULFATE
     Dosage: 1500 MILLIGRAM
     Route: 065
     Dates: start: 20181026
  12. LYRICA [Concomitant]
     Active Substance: PREGABALIN
     Dosage: 50 MILLIGRAM
     Route: 065
     Dates: start: 20190208
  13. SIMVASTATIN. [Concomitant]
     Active Substance: SIMVASTATIN
     Dosage: UNK
     Route: 065
     Dates: start: 20181026
  14. NINLARO [Suspect]
     Active Substance: IXAZOMIB CITRATE
     Dosage: 4 MILLIGRAM
     Route: 048
  15. ALLOPURINOL. [Concomitant]
     Active Substance: ALLOPURINOL
     Dosage: UNK
     Route: 065
     Dates: start: 20180208
  16. CALCIUM CARBONATE W/VITAMIN D      /00944201/ [Concomitant]
     Active Substance: CALCIUM CARBONATE\CHOLECALCIFEROL
     Dosage: UNK
     Route: 065
     Dates: start: 20181026
  17. ENALAPRIL [Concomitant]
     Active Substance: ENALAPRIL
     Dosage: 5 MILLIGRAM
     Route: 065
     Dates: start: 20181026
  18. REVLIMID [Suspect]
     Active Substance: LENALIDOMIDE
     Indication: PLASMA CELL MYELOMA
     Dosage: 25 MILLIGRAM, QD
     Route: 048
     Dates: start: 20181105
  19. XGEVA [Concomitant]
     Active Substance: DENOSUMAB
     Dosage: 120 UNK
     Route: 065
     Dates: start: 20190110, end: 20190424
  20. NINLARO [Suspect]
     Active Substance: IXAZOMIB CITRATE
     Dosage: 4 MILLIGRAM
     Route: 048
     Dates: start: 20190304
  21. VELCADE [Suspect]
     Active Substance: BORTEZOMIB
     Indication: PRODUCT USED FOR UNKNOWN INDICATION
     Dosage: 3.5 MILLIGRAM
     Route: 065
     Dates: start: 20190110, end: 20190424
  22. COLCHICINE. [Concomitant]
     Active Substance: COLCHICINE
     Dosage: 0.6 MILLIGRAM
     Route: 065
     Dates: start: 20180208
  23. IRON [Concomitant]
     Active Substance: IRON
     Dosage: 325 MILLIGRAM
     Route: 065
     Dates: start: 20180228
  24. METFORMIN ER [Concomitant]
     Active Substance: METFORMIN HYDROCHLORIDE
     Dosage: 1000 MILLIGRAM
     Route: 065
     Dates: start: 20181026
  25. MORPHINE SULFATE. [Concomitant]
     Active Substance: MORPHINE SULFATE
     Dosage: 15 MILLIGRAM
     Route: 065
     Dates: start: 20181026

REACTIONS (13)
  - Pain in extremity [Recovered/Resolved]
  - Off label use [Unknown]
  - Lethargy [Unknown]
  - Fall [Unknown]
  - Fatigue [Unknown]
  - Anaemia [Recovered/Resolved]
  - Asthenia [Unknown]
  - Back pain [Unknown]
  - Diarrhoea [Unknown]
  - Gingivitis [Unknown]
  - Peripheral swelling [Unknown]
  - Blood glucose decreased [Unknown]
  - Overdose [Recovered/Resolved]

NARRATIVE: CASE EVENT DATE: 20190228
